FAERS Safety Report 6344020-9 (Version None)
Quarter: 2009Q3

REPORT INFORMATION
  Report Type: 
  Country: None (occurrence: None)
  Receive Date: 20090908
  Receipt Date: 20090828
  Transmission Date: 20100115
  Serious: Yes (Other)
  Sender: FDA-Public Use
  Company Number: US-PFIZER INC-2009263098

PATIENT
  Sex: Female
  Weight: 59 kg

DRUGS (6)
  1. LIPITOR [Suspect]
     Indication: BLOOD CHOLESTEROL INCREASED
     Dosage: 40 MG, 1X/DAY
     Dates: start: 20020101
  2. LIPITOR [Suspect]
     Dosage: 80 MG, 1X/DAY
  3. LIPITOR [Suspect]
     Dosage: 20 MG, UNK
  4. BENAZEPRIL [Concomitant]
     Dosage: 10 MG, UNK
  5. ACETYLSALICYLIC ACID [Concomitant]
     Dosage: 81 MG, UNK
  6. ZOLOFT [Concomitant]
     Dosage: UNK

REACTIONS (6)
  - BLOOD CHOLESTEROL INCREASED [None]
  - BODY HEIGHT DECREASED [None]
  - DIABETES MELLITUS [None]
  - HIP ARTHROPLASTY [None]
  - LIVER FUNCTION TEST ABNORMAL [None]
  - WEIGHT DECREASED [None]
